FAERS Safety Report 19119955 (Version 1)
Quarter: 2021Q2

REPORT INFORMATION
  Report Type: Other
  Country: PH (occurrence: PH)
  Receive Date: 20210412
  Receipt Date: 20210412
  Transmission Date: 20210717
  Serious: Yes (Hospitalization, Other)
  Sender: FDA-Public Use
  Company Number: PH-NAARI PTE LIMITED-2109182

PATIENT
  Age: 39 Year
  Sex: Female

DRUGS (2)
  1. DEXAMETHASONE. [Suspect]
     Active Substance: DEXAMETHASONE
     Route: 030
  2. LEVONORGESTREL AND ETHINYL ESTRADIOL [Suspect]
     Active Substance: ETHINYL ESTRADIOL\LEVONORGESTREL
     Indication: ORAL CONTRACEPTION
     Route: 048

REACTIONS (3)
  - Tolosa-Hunt syndrome [Recovered/Resolved]
  - Maternal exposure during pregnancy [Unknown]
  - Disease recurrence [Recovered/Resolved]
